FAERS Safety Report 8847039 (Version 1)
Quarter: 2012Q4

REPORT INFORMATION
  Report Type: Spontaneous
  Country: US (occurrence: None)
  Receive Date: 20121017
  Receipt Date: 20121017
  Transmission Date: 20130627
  Serious: Yes (Death, Life-Threatening, Hospitalization)
  Sender: FDA-Public Use
  Company Number: None

PATIENT
  Age: 53 Year
  Sex: Female
  Weight: 72.58 kg

DRUGS (1)
  1. REMICADE [Suspect]
     Indication: ULCERATIVE COLITIS
     Dosage: iv infusion 6 weeks iv drip
     Route: 041
     Dates: start: 20120401, end: 20120629

REACTIONS (4)
  - Dyspnoea [None]
  - Fatigue [None]
  - Cardiac failure congestive [None]
  - Acute hepatic failure [None]
